FAERS Safety Report 9908624 (Version 1)
Quarter: 2014Q1

REPORT INFORMATION
  Report Type: Spontaneous
  Country: US (occurrence: None)
  Receive Date: 20140214
  Receipt Date: 20140214
  Transmission Date: 20141002
  Serious: Yes (Hospitalization)
  Sender: FDA-Public Use
  Company Number: None

PATIENT
  Age: 67 Year
  Sex: Female
  Weight: 62.3 kg

DRUGS (5)
  1. VANCOMYCIN [Suspect]
     Indication: PNEUMONIA STAPHYLOCOCCAL
     Dosage: RECENT?1500MG Q12HR X 12 DAYS OF 42VIA PICC LINE?
  2. VICOPROFEN [Suspect]
     Indication: PAIN
     Dosage: RECENT
     Route: 048
  3. COREG [Concomitant]
  4. PRAVASTATIN [Concomitant]
  5. VICODIN [Concomitant]

REACTIONS (4)
  - Rash [None]
  - Tubulointerstitial nephritis [None]
  - Renal failure acute [None]
  - Drug level increased [None]
